FAERS Safety Report 7107351-0 (Version None)
Quarter: 2010Q4

REPORT INFORMATION
  Report Type: 
  Country: None (occurrence: None)
  Receive Date: 20101112
  Receipt Date: 20101112
  Transmission Date: 20110411
  Serious: No
  Sender: FDA-Public Use
  Company Number: None

PATIENT
  Age: 25 Year
  Sex: Female
  Weight: 60.3284 kg

DRUGS (1)
  1. KENELOG 40 BRISTOL-MYERS SQUIBB [Suspect]
     Indication: EXPOSURE TO TOXIC AGENT
     Dosage: 1 CC (40 MG) ONCE I.M.
     Route: 030
     Dates: start: 20100421

REACTIONS (2)
  - LIPOATROPHY [None]
  - WRONG TECHNIQUE IN DRUG USAGE PROCESS [None]
